FAERS Safety Report 7148753-6 (Version None)
Quarter: 2010Q4

REPORT INFORMATION
  Report Type: 
  Country: None (occurrence: None)
  Receive Date: 20101209
  Receipt Date: 20101130
  Transmission Date: 20110411
  Serious: Yes (Other)
  Sender: FDA-Public Use
  Company Number: US-ACTELION-A-NJ2010-41431

PATIENT

DRUGS (2)
  1. TRACLEER [Suspect]
     Indication: PULMONARY ARTERIAL HYPERTENSION
     Dosage: 62.5 MG, BID
     Route: 048
     Dates: start: 20101103
  2. COUMADIN [Concomitant]

REACTIONS (4)
  - LIMB INJURY [None]
  - LOCALISED OEDEMA [None]
  - PAIN IN EXTREMITY [None]
  - SKIN DISCOLOURATION [None]
